FAERS Safety Report 7238060-5 (Version None)
Quarter: 2011Q1

REPORT INFORMATION
  Report Type: 
  Country: None (occurrence: None)
  Receive Date: 20110121
  Receipt Date: 20110118
  Transmission Date: 20110831
  Serious: Yes (Other)
  Sender: FDA-Public Use
  Company Number: B0684106A

PATIENT
  Sex: Female

DRUGS (1)
  1. LAMBIPOL [Suspect]
     Route: 065
     Dates: end: 20100901

REACTIONS (7)
  - HEADACHE [None]
  - DILATATION VENTRICULAR [None]
  - DISTURBANCE IN ATTENTION [None]
  - MENINGITIS ASEPTIC [None]
  - SCAN ABNORMAL [None]
  - MEMORY IMPAIRMENT [None]
  - NEUROLOGICAL SYMPTOM [None]
